FAERS Safety Report 14427037 (Version 10)
Quarter: 2024Q1

REPORT INFORMATION
  Report Type: Spontaneous
  Country: PT (occurrence: PT)
  Receive Date: 20180123
  Receipt Date: 20240318
  Transmission Date: 20240410
  Serious: Yes (Other)
  Sender: FDA-Public Use
  Company Number: PT-NOVPHSZ-PHHY2018PT001500

PATIENT
  Age: 17 Year

DRUGS (3)
  1. IBUPROFEN [Suspect]
     Active Substance: IBUPROFEN
     Indication: Drug provocation test
     Dosage: 40 MILLIGRAM
     Route: 048
  2. IBUPROFEN [Suspect]
     Active Substance: IBUPROFEN
     Dosage: UNK
     Route: 065
  3. IBUPROFEN [Suspect]
     Active Substance: IBUPROFEN
     Dosage: 40 MILLIGRAM, TOTAL (40 MG, 1X)
     Route: 048
     Dates: start: 2015, end: 2015

REACTIONS (13)
  - Lip oedema [Unknown]
  - Flushing [Unknown]
  - Oedema peripheral [Unknown]
  - Hypoaesthesia [Unknown]
  - Palmar erythema [Unknown]
  - Erythema [Unknown]
  - Drug hypersensitivity [Unknown]
  - Generalised oedema [Unknown]
  - Oedema [Unknown]
  - Off label use [Unknown]
  - Product use in unapproved indication [Unknown]
  - Peripheral swelling [Unknown]
  - Intentional product misuse [Unknown]

NARRATIVE: CASE EVENT DATE: 20150101
